FAERS Safety Report 17196694 (Version 1)
Quarter: 2019Q4

REPORT INFORMATION
  Report Type: Report from Study
  Country: CA (occurrence: CA)
  Receive Date: 20191224
  Receipt Date: 20191224
  Transmission Date: 20200122
  Serious: Yes (Hospitalization, Other)
  Sender: FDA-Public Use
  Company Number: CA-PFIZER INC-2019551361

PATIENT
  Age: 59 Year
  Sex: Female
  Weight: 56 kg

DRUGS (21)
  1. DECADRON [Concomitant]
     Active Substance: DEXAMETHASONE
     Dosage: UNK
  2. FUROSEMIDE. [Concomitant]
     Active Substance: FUROSEMIDE
     Dosage: UNK
  3. STEMETIL [PROCHLORPERAZINE] [Concomitant]
     Active Substance: PROCHLORPERAZINE
     Dosage: UNK
  4. CALCIUM AND ERGOCALCIFEROL [Concomitant]
     Active Substance: CALCIUM\ERGOCALCIFEROL
     Dosage: UNK
     Route: 065
  5. CELEBREX [Concomitant]
     Active Substance: CELECOXIB
     Dosage: UNK
  6. CIPROFLOXACIN. [Concomitant]
     Active Substance: CIPROFLOXACIN
     Dosage: UNK
  7. LOVENOX HP [Concomitant]
     Active Substance: ENOXAPARIN SODIUM
     Dosage: UNK
  8. NORMAL SALINE [Concomitant]
     Active Substance: SODIUM CHLORIDE
     Dosage: UNK
  9. PREGABALIN. [Concomitant]
     Active Substance: PREGABALIN
     Dosage: UNK
  10. SENOKOT [Concomitant]
     Active Substance: SENNOSIDES
     Dosage: UNK
  11. MORPHINE [Concomitant]
     Active Substance: MORPHINE
     Dosage: UNK
  12. TYLENOL [Concomitant]
     Active Substance: ACETAMINOPHEN
     Dosage: UNK
  13. COLACE [Concomitant]
     Active Substance: DOCUSATE SODIUM
     Dosage: UNK
  14. METRONIDAZOLE. [Concomitant]
     Active Substance: METRONIDAZOLE
     Dosage: UNK
  15. CEFADROXIL. [Concomitant]
     Active Substance: CEFADROXIL
     Dosage: UNK
  16. PIPERACILLIN SODIUM/TAZOBACTAM SODIUM [Concomitant]
     Active Substance: PIPERACILLIN SODIUM\TAZOBACTAM SODIUM
     Dosage: UNK
  17. GEMCITABINE HYDROCHLORIDE. [Suspect]
     Active Substance: GEMCITABINE HYDROCHLORIDE
     Indication: NEOPLASM MALIGNANT
     Dosage: 154.0 MG, UNK
  18. PAMIDRONATE DISODIUM. [Concomitant]
     Active Substance: PAMIDRONATE DISODIUM
     Dosage: UNK
  19. GEMCITABINE HYDROCHLORIDE. [Suspect]
     Active Substance: GEMCITABINE HYDROCHLORIDE
     Dosage: 168 MG, UNK
     Route: 042
  20. GEMCITABINE HYDROCHLORIDE. [Suspect]
     Active Substance: GEMCITABINE HYDROCHLORIDE
     Dosage: 100 MG/M2, UNK
     Route: 042
  21. HYDROCORTISONE SODIUM SUCCINATE [Concomitant]
     Active Substance: HYDROCORTISONE SODIUM SUCCINATE
     Dosage: UNK

REACTIONS (11)
  - Pleural effusion [Recovered/Resolved]
  - Staphylococcal infection [Recovered/Resolved]
  - Wound infection pseudomonas [Recovered/Resolved]
  - Abdominal pain [Recovered/Resolved]
  - Ventricular extrasystoles [Recovered/Resolved]
  - Chills [Recovered/Resolved]
  - Pyrexia [Recovered/Resolved]
  - Wound infection staphylococcal [Recovered/Resolved]
  - Bacterial infection [Recovered/Resolved]
  - Sinus tachycardia [Recovered/Resolved]
  - Pseudomonas infection [Recovered/Resolved]
